FAERS Safety Report 24386788 (Version 2)
Quarter: 2024Q4

REPORT INFORMATION
  Report Type: Spontaneous
  Country: ZA (occurrence: ZA)
  Receive Date: 20241002
  Receipt Date: 20241026
  Transmission Date: 20250114
  Serious: Yes (Other)
  Sender: DR REDDYS
  Company Number: ZA-RDY-SPO/ZAF/24/0014292

PATIENT
  Sex: Male

DRUGS (2)
  1. QUETIAPINE [Suspect]
     Active Substance: QUETIAPINE
     Indication: Product used for unknown indication
     Dosage: 1 TAB IN THE MORNING AND 1 TAB AT NIGHT
     Route: 065
  2. QUETIAPINE [Suspect]
     Active Substance: QUETIAPINE
     Dosage: 2 TABS AT NIGHT
     Route: 065
     Dates: end: 2024

REACTIONS (5)
  - Circulatory collapse [Unknown]
  - Palpitations [Unknown]
  - Hyperhidrosis [Unknown]
  - Vision blurred [Unknown]
  - Drug ineffective [Unknown]

NARRATIVE: CASE EVENT DATE: 20240101
